FAERS Safety Report 4646547-4 (Version None)
Quarter: 2005Q2

REPORT INFORMATION
  Report Type: 
  Country: None (occurrence: None)
  Receive Date: 20050427
  Receipt Date: 20041014
  Transmission Date: 20051028
  Serious: No
  Sender: FDA-Public Use
  Company Number: US-GLAXOSMITHKLINE-A0529945A

PATIENT
  Age: 32 Month
  Sex: Male

DRUGS (2)
  1. FLOVENT [Suspect]
     Indication: ASTHMA
     Dosage: 110MCG TWICE PER DAY
     Route: 055
     Dates: start: 20041013
  2. ALBUTEROL [Concomitant]

REACTIONS (3)
  - HYPERSENSITIVITY [None]
  - SWELLING [None]
  - URTICARIA [None]
